FAERS Safety Report 18437103 (Version 1)
Quarter: 2020Q4

REPORT INFORMATION
  Report Type: Spontaneous
  Country: US (occurrence: US)
  Receive Date: 20201028
  Receipt Date: 20201028
  Transmission Date: 20210114
  Serious: Yes (Disabling, Other)
  Sender: FDA-Public Use
  Company Number: US-PURDUE-USA-2020-0169104

PATIENT

DRUGS (2)
  1. OXYCONTIN [Suspect]
     Active Substance: OXYCODONE HYDROCHLORIDE
     Indication: PRODUCT USED FOR UNKNOWN INDICATION
     Dosage: UNK
     Route: 048
  2. PERCOCET [Suspect]
     Active Substance: ACETAMINOPHEN\OXYCODONE HYDROCHLORIDE
     Indication: PRODUCT USED FOR UNKNOWN INDICATION
     Dosage: UNK
     Route: 065

REACTIONS (13)
  - Eye pain [Unknown]
  - Fall [Unknown]
  - Anxiety [Unknown]
  - Gait inability [Unknown]
  - Headache [Unknown]
  - Drug withdrawal syndrome [Unknown]
  - Adverse drug reaction [Unknown]
  - Gingival disorder [Unknown]
  - Tooth injury [Unknown]
  - Depression [Unknown]
  - Drug dependence [Unknown]
  - Obesity [Unknown]
  - Insomnia [Unknown]
